FAERS Safety Report 7899985-0 (Version None)
Quarter: 2011Q4

REPORT INFORMATION
  Report Type: 
  Country: None (occurrence: None)
  Receive Date: 20111107
  Receipt Date: 20111019
  Transmission Date: 20120403
  Serious: No
  Sender: FDA-Public Use
  Company Number: US-AMGEN-USASP2011048377

PATIENT
  Age: 57 Year
  Sex: Female
  Weight: 53.515 kg

DRUGS (1)
  1. ENBREL [Suspect]
     Indication: PRODUCT USED FOR UNKNOWN INDICATION
     Dosage: 50 MG, QWK
     Route: 058
     Dates: start: 20110801

REACTIONS (7)
  - INJECTION SITE REACTION [None]
  - KIDNEY INFECTION [None]
  - INJECTION SITE SWELLING [None]
  - INFLUENZA LIKE ILLNESS [None]
  - INJECTION SITE ERYTHEMA [None]
  - GASTRIC INFECTION [None]
  - INJECTION SITE PRURITUS [None]
